FAERS Safety Report 12393704 (Version 1)
Quarter: 2016Q2

REPORT INFORMATION
  Report Type: Spontaneous
  Country: US (occurrence: US)
  Receive Date: 20160523
  Receipt Date: 20160523
  Transmission Date: 20160815
  Serious: No
  Sender: FDA-Public Use
  Company Number: US-BAUSCH-BL-2015-030914

PATIENT
  Age: 83 Year
  Sex: Male
  Weight: 77.18 kg

DRUGS (14)
  1. POTASSIUM [Concomitant]
     Active Substance: POTASSIUM
     Indication: SUPPLEMENTATION THERAPY
     Route: 048
  2. PROPRANOLOL [Concomitant]
     Active Substance: PROPRANOLOL\PROPRANOLOL HYDROCHLORIDE
     Indication: BLOOD PRESSURE INCREASED
     Route: 048
  3. MYSOLINE [Suspect]
     Active Substance: PRIMIDONE
     Route: 048
     Dates: start: 201512, end: 201512
  4. VITAMIN B12 [Concomitant]
     Active Substance: CYANOCOBALAMIN
     Indication: SUPPLEMENTATION THERAPY
     Route: 048
  5. FUROSEMIDE. [Concomitant]
     Active Substance: FUROSEMIDE
     Indication: PRODUCT USED FOR UNKNOWN INDICATION
     Route: 048
  6. MYSOLINE [Suspect]
     Active Substance: PRIMIDONE
     Indication: DYSKINESIA
     Route: 048
     Dates: start: 201407, end: 2015
  7. TAMSULOSIN [Concomitant]
     Active Substance: TAMSULOSIN
     Indication: URINE ANALYSIS ABNORMAL
     Route: 048
  8. MYSOLINE [Suspect]
     Active Substance: PRIMIDONE
     Route: 048
     Dates: start: 201512, end: 20151224
  9. ASPIRIN. [Concomitant]
     Active Substance: ASPIRIN
     Indication: CARDIAC DISORDER
     Route: 048
  10. VITAMIN E [Concomitant]
     Active Substance: .ALPHA.-TOCOPHEROL
     Indication: SUPPLEMENTATION THERAPY
     Route: 048
  11. MYSOLINE [Suspect]
     Active Substance: PRIMIDONE
     Route: 048
     Dates: start: 201509
  12. ATORVASTATIN [Concomitant]
     Active Substance: ATORVASTATIN
     Indication: BLOOD CHOLESTEROL INCREASED
     Route: 048
  13. MYSOLINE [Suspect]
     Active Substance: PRIMIDONE
     Route: 048
     Dates: start: 201512, end: 201512
  14. COUMADIN [Concomitant]
     Active Substance: WARFARIN SODIUM
     Indication: ATRIAL FIBRILLATION
     Route: 048
     Dates: start: 201407, end: 2015

REACTIONS (3)
  - Pigmentation disorder [Recovering/Resolving]
  - Headache [Recovering/Resolving]
  - Pruritus [Recovering/Resolving]

NARRATIVE: CASE EVENT DATE: 201509
